FAERS Safety Report 10078356 (Version 2)
Quarter: 2014Q2

REPORT INFORMATION
  Report Type: Report from Study
  Country: CA (occurrence: CA)
  Receive Date: 20140415
  Receipt Date: 20140415
  Transmission Date: 20141212
  Serious: Yes (Other)
  Sender: FDA-Public Use
  Company Number: CA-ROCHE-1118674

PATIENT
  Age: 67 Year
  Sex: Female
  Weight: 83.08 kg

DRUGS (11)
  1. ACTEMRA [Suspect]
     Indication: RHEUMATOID ARTHRITIS
     Route: 042
     Dates: start: 20120525
  2. ACTEMRA [Suspect]
     Route: 042
     Dates: start: 20131113
  3. METHOTREXATE [Suspect]
     Indication: PRODUCT USED FOR UNKNOWN INDICATION
     Route: 065
  4. ACETAMINOPHEN [Concomitant]
  5. SYNTHROID [Concomitant]
  6. NEXIUM [Concomitant]
  7. PREDNISONE [Concomitant]
     Route: 065
  8. CARBOCAL [Concomitant]
  9. APO-RANITIDINE [Concomitant]
  10. FUROSEMIDE [Concomitant]
  11. CLONAZEPAM [Concomitant]
     Route: 065

REACTIONS (10)
  - Muscle spasms [Unknown]
  - Peripheral swelling [Unknown]
  - Mouth ulceration [Recovered/Resolved]
  - Pain in extremity [Not Recovered/Not Resolved]
  - Nausea [Unknown]
  - Headache [Unknown]
  - Tongue disorder [Unknown]
  - Gingival swelling [Unknown]
  - Gingival pain [Unknown]
  - Arthropathy [Not Recovered/Not Resolved]
